FAERS Safety Report 17282195 (Version 2)
Quarter: 2020Q1

REPORT INFORMATION
  Report Type: Spontaneous
  Country: US (occurrence: US)
  Receive Date: 20200117
  Receipt Date: 20200212
  Transmission Date: 20200409
  Serious: No
  Sender: FDA-Public Use
  Company Number: US-GLAXOSMITHKLINE-US2020004772

PATIENT
  Sex: Male

DRUGS (1)
  1. VENTOLIN HFA [Suspect]
     Active Substance: ALBUTEROL SULFATE
     Indication: ASTHMA
     Dosage: 1 PUFF(S) PRN
     Route: 055
     Dates: start: 2019

REACTIONS (3)
  - Prescription drug used without a prescription [Unknown]
  - Wrong technique in device usage process [Unknown]
  - Product complaint [Unknown]
